FAERS Safety Report 7536275-X (Version None)
Quarter: 2011Q2

REPORT INFORMATION
  Report Type: 
  Country: None (occurrence: None)
  Receive Date: 20110608
  Receipt Date: 20110608
  Transmission Date: 20111010
  Serious: Yes (Other)
  Sender: FDA-Public Use
  Company Number: None

PATIENT
  Age: 59 Year
  Sex: Female
  Weight: 56.6996 kg

DRUGS (1)
  1. LISINOPRIL [Suspect]
     Indication: HYPERTENSION
     Dosage: 1PILL ONCE A DAT

REACTIONS (5)
  - MIGRAINE [None]
  - LIP SWELLING [None]
  - EYE SWELLING [None]
  - CHEST PAIN [None]
  - DIARRHOEA [None]
